FAERS Safety Report 5465141-9 (Version None)
Quarter: 2007Q3

REPORT INFORMATION
  Report Type: 
  Country: None (occurrence: None)
  Receive Date: 20070820
  Receipt Date: 20070424
  Transmission Date: 20080115
  Serious: No
  Sender: FDA-Public Use
  Company Number: WAES 0704USA05454

PATIENT
  Age: 56 Year
  Sex: Male

DRUGS (4)
  1. JANUVIA [Suspect]
     Indication: BLOOD GLUCOSE
     Dosage: 100 MG/DAILY/PO
     Route: 048
     Dates: start: 20070417
  2. NIASPAN [Suspect]
  3. HYZAAR [Concomitant]
  4. VYTORIN [Concomitant]

REACTIONS (2)
  - FLUSHING [None]
  - PARAESTHESIA [None]
